FAERS Safety Report 11397616 (Version 2)
Quarter: 2015Q3

REPORT INFORMATION
  Report Type: Spontaneous
  Country: FR (occurrence: FR)
  Receive Date: 20150819
  Receipt Date: 20150917
  Transmission Date: 20151125
  Serious: Yes (Hospitalization)
  Sender: FDA-Public Use
  Company Number: FR-PFIZER INC-2015271687

PATIENT
  Age: 92 Year
  Sex: Female

DRUGS (13)
  1. TARGOCID [Suspect]
     Active Substance: TEICOPLANIN
     Indication: DERMO-HYPODERMITIS
     Dosage: 400 MG, 1X/DAY
     Route: 042
     Dates: start: 20150714, end: 20150718
  2. APROVEL [Concomitant]
     Active Substance: IRBESARTAN
     Dosage: 300 MG, 1X/DAY
     Route: 048
  3. CLOPIDOGREL [Concomitant]
     Active Substance: CLOPIDOGREL BISULFATE
     Dosage: 75 MG, 1X/DAY
     Route: 048
  4. DALACINE [Suspect]
     Active Substance: CLINDAMYCIN HYDROCHLORIDE
     Indication: DERMO-HYPODERMITIS
     Dosage: 300 MG, 6X/DAY
     Route: 048
     Dates: start: 20150716, end: 20150718
  5. ACEBUTOLOL [Concomitant]
     Active Substance: ACEBUTOLOL
     Dosage: 400 MG, 1X/DAY
     Route: 048
  6. FRAGMINE [Concomitant]
     Active Substance: DALTEPARIN SODIUM
     Dosage: 5000 IU, 1X/DAY
     Route: 058
     Dates: start: 20150717
  7. CORTANCYL [Concomitant]
     Active Substance: PREDNISONE
     Dosage: 6 MG, 1X/DAY (1 TABLET OF 5 MG AND 1 TABLET OF 1 MG)
     Route: 048
  8. CACIT VITAMINE D3 [Concomitant]
     Active Substance: CALCIUM CARBONATE\CHOLECALCIFEROL
     Dosage: 1 DF, 1X/DAY
     Route: 048
  9. DELURSAN [Concomitant]
     Active Substance: URSODIOL
     Dosage: 250 MG, 2X/DAY
     Route: 048
  10. LEVOTHYROX [Concomitant]
     Active Substance: LEVOTHYROXINE
     Dosage: 50 ?G, 1X/DAY
     Route: 048
  11. KALEORID LP [Concomitant]
     Dosage: 1000 MG, 1X/DAY
     Route: 048
     Dates: start: 20150716
  12. DOLIPRANE [Concomitant]
     Active Substance: ACETAMINOPHEN
     Dosage: 1 G, 4X/DAY (EVERY 6 HRS)
  13. ESOMEPRAZOLE [Concomitant]
     Active Substance: ESOMEPRAZOLE
     Dosage: 20 MG, 1X/DAY

REACTIONS (2)
  - Hallucination, visual [Recovered/Resolved]
  - Nightmare [Recovered/Resolved]

NARRATIVE: CASE EVENT DATE: 20150718
